FAERS Safety Report 23977991 (Version 1)
Quarter: 2024Q2

REPORT INFORMATION
  Report Type: Spontaneous
  Country: AR (occurrence: AR)
  Receive Date: 20240614
  Receipt Date: 20240614
  Transmission Date: 20240715
  Serious: Yes (Other)
  Sender: FDA-Public Use
  Company Number: AR-TEVA-VS-3208336

PATIENT
  Sex: Male

DRUGS (2)
  1. VALPROATE SODIUM [Suspect]
     Active Substance: VALPROATE SODIUM
     Indication: Epilepsy
     Dosage: 1500 MG PER DAY
     Route: 065
     Dates: start: 2023, end: 2023
  2. VALPROATE SODIUM [Suspect]
     Active Substance: VALPROATE SODIUM
     Indication: Epilepsy
     Dosage: 1500 MG PER DAY
     Route: 065
     Dates: start: 2023

REACTIONS (5)
  - Systemic lupus erythematosus [Not Recovered/Not Resolved]
  - Tremor [Recovered/Resolved]
  - Weight increased [Recovered/Resolved]
  - Rash [Not Recovered/Not Resolved]
  - Irritability [Recovered/Resolved]

NARRATIVE: CASE EVENT DATE: 20230101
